FAERS Safety Report 7162314-4 (Version None)
Quarter: 2010Q4

REPORT INFORMATION
  Report Type: 
  Country: None (occurrence: None)
  Receive Date: 20101215
  Receipt Date: 20091014
  Transmission Date: 20110411
  Serious: Yes (Hospitalization, Other)
  Sender: FDA-Public Use
  Company Number: US-PFIZER INC-2008032105

PATIENT
  Sex: Female
  Weight: 63.492 kg

DRUGS (7)
  1. LYRICA [Suspect]
     Indication: FIBROMYALGIA
     Dosage: 50 MG, UNK
     Dates: start: 20070212
  2. CYMBALTA [Concomitant]
  3. CLONAZEPAM [Concomitant]
  4. HYDROCODONE [Concomitant]
     Indication: PAIN
  5. CYCLOBENZAPRINE [Concomitant]
  6. AMITRIPTYLINE [Concomitant]
  7. FENTANYL [Concomitant]

REACTIONS (3)
  - AGGRESSION [None]
  - PARANOIA [None]
  - SUICIDE ATTEMPT [None]
